FAERS Safety Report 9971996 (Version 2)
Quarter: 2014Q1

REPORT INFORMATION
  Report Type: Spontaneous
  Country: CN (occurrence: None)
  Receive Date: 20140304
  Receipt Date: 20140325
  Transmission Date: 20141002
  Serious: Yes (Hospitalization)
  Sender: FDA-Public Use
  Company Number: 2014P1001604

PATIENT
  Age: 49 Year
  Sex: Male

DRUGS (1)
  1. DIGOXIN [Suspect]
     Indication: HYPERTENSION
     Dates: start: 2010

REACTIONS (6)
  - Overdose [None]
  - Aneurysm ruptured [None]
  - Medication error [None]
  - Acute myocardial infarction [None]
  - Acute coronary syndrome [None]
  - Cardiac murmur [None]
